FAERS Safety Report 26085465 (Version 2)
Quarter: 2025Q4

REPORT INFORMATION
  Report Type: Report from Study
  Country: EU (occurrence: EU)
  Receive Date: 20251125
  Receipt Date: 20251203
  Transmission Date: 20260118
  Serious: Yes (Hospitalization)
  Sender: ABBVIE
  Company Number: EU-ABBVIE-6551871

PATIENT
  Sex: Male

DRUGS (4)
  1. CARBIDOPA\LEVODOPA [Suspect]
     Active Substance: CARBIDOPA\LEVODOPA
     Indication: Parkinson^s disease
     Dosage: FOR 16H: 6.5MD ML; CRT 2.1ML/H; ED 1.0 ML
     Route: 050
     Dates: start: 20230925
  2. CARBIDOPA\LEVODOPA [Suspect]
     Active Substance: CARBIDOPA\LEVODOPA
     Dosage: FOR 16H: MD: 6.5 ML; CRT 2.3 ML/H; ED 1.0 ML
     Route: 050
  3. CARBIDOPA\LEVODOPA [Suspect]
     Active Substance: CARBIDOPA\LEVODOPA
     Dosage: FOR 16H: MD: 6.5 ML; CRT 2.4 ML/H; ED 1.0 ML
     Route: 050
  4. CARBIDOPA\LEVODOPA [Suspect]
     Active Substance: CARBIDOPA\LEVODOPA
     Dosage: FOR 16H: MD 6.5 ML; CRT: 2.7 ML/H; AFTERNOON DOSE: 2.5 ML/H; ED 1.0 ML.
     Route: 050

REACTIONS (6)
  - Hypotension [Recovered/Resolved]
  - Therapeutic product effect decreased [Recovered/Resolved]
  - Hypokinesia [Recovered/Resolved]
  - Dysphagia [Recovered/Resolved]
  - Fluid intake reduced [Recovered/Resolved]
  - Dizziness [Recovered/Resolved]
